FAERS Safety Report 10029466 (Version 3)
Quarter: 2014Q2

REPORT INFORMATION
  Report Type: Report from Study
  Country: MX (occurrence: MX)
  Receive Date: 20140322
  Receipt Date: 20140524
  Transmission Date: 20141212
  Serious: Yes (Other)
  Sender: FDA-Public Use
  Company Number: PHHY2014MX034489

PATIENT
  Sex: Female

DRUGS (3)
  1. CO-DIOVAN [Suspect]
     Indication: HYPERTENSION
     Dosage: 1 DF (320/25MG), DAILY
     Route: 048
     Dates: start: 20080714, end: 2012
  2. SELOKEN [Concomitant]
     Indication: HYPERTENSION
     Dosage: 1 UKN, DAILY
     Dates: start: 20120807
  3. TENORMIN [Concomitant]
     Indication: BLOOD PRESSURE ABNORMAL
     Dosage: UNK UKN, UNK

REACTIONS (4)
  - Diabetes mellitus [Recovered/Resolved]
  - Headache [Recovered/Resolved]
  - Dizziness [Recovered/Resolved]
  - Blood pressure systolic increased [Unknown]
